FAERS Safety Report 9359729 (Version 2)
Quarter: 2013Q2

REPORT INFORMATION
  Report Type: Report from Study
  Country: DK (occurrence: DK)
  Receive Date: 20130621
  Receipt Date: 20130626
  Transmission Date: 20140414
  Serious: Yes (Hospitalization, Other)
  Sender: FDA-Public Use
  Company Number: DK-AMGEN-DNKCT2013038815

PATIENT
  Age: 67 Year
  Sex: Female
  Weight: 89 kg

DRUGS (10)
  1. DENOSUMAB [Suspect]
     Indication: BREAST CANCER
     Dosage: 120 MG, UNK
     Route: 058
     Dates: start: 20110502, end: 20120626
  2. FEMARA [Concomitant]
     Indication: BREAST CANCER
     Dosage: UNK
     Dates: start: 20110411
  3. CATAPRESAN [Concomitant]
     Dosage: 25 MUG, UNK
     Route: 048
     Dates: start: 20120626, end: 20130115
  4. PEVISON [Concomitant]
     Dosage: UNK
     Route: 061
     Dates: start: 20120901, end: 20121211
  5. CALCIUM [Concomitant]
     Dosage: 400 MG, UNK
     Route: 048
     Dates: start: 20110411
  6. VITAMIN D [Concomitant]
     Dosage: 10 MUG, UNK
     Route: 048
     Dates: start: 20110411, end: 20130315
  7. CHLORHEXIDINE [Concomitant]
     Dosage: 100 ML, UNK
  8. SEPTANEST [Concomitant]
     Dosage: 1.8 ML, UNK
  9. HYDROGEN PEROXIDE [Concomitant]
  10. GUTTA PERCHA [Concomitant]

REACTIONS (1)
  - Osteonecrosis of jaw [Recovered/Resolved]
